FAERS Safety Report 23598034 (Version 1)
Quarter: 2024Q1

REPORT INFORMATION
  Report Type: Spontaneous
  Country: CH (occurrence: CH)
  Receive Date: 20240305
  Receipt Date: 20240305
  Transmission Date: 20240410
  Serious: Yes (Other)
  Sender: FDA-Public Use
  Company Number: None

PATIENT
  Age: 14 Year
  Sex: Male

DRUGS (18)
  1. CYTARABINE [Suspect]
     Active Substance: CYTARABINE
     Dosage: 30 MG, SINGLE (IN TOTAL)
     Route: 037
     Dates: start: 20240212, end: 20240212
  2. DIFLUCAN [Suspect]
     Active Substance: FLUCONAZOLE
     Dosage: 400 MG, 2X/DAY (EVERY 12H)
     Route: 048
     Dates: start: 20240129
  3. POTASSIUM CHLORIDE [Concomitant]
     Active Substance: POTASSIUM CHLORIDE
  4. NPLATE [Concomitant]
     Active Substance: ROMIPLOSTIM
  5. RECORMON [ERYTHROPOIETIN HUMAN] [Concomitant]
  6. CYCLOSPORINE [Concomitant]
     Active Substance: CYCLOSPORINE
  7. ZOFRAN [Concomitant]
     Active Substance: ONDANSETRON HYDROCHLORIDE
  8. MAGNESIUM ASPARTATE HYDROCHLORIDE [Concomitant]
     Active Substance: MAGNESIUM ASPARTATE HYDROCHLORIDE
  9. METOFOL [FOLIC ACID] [Concomitant]
  10. ESOMEPRAZOLE MAGNESIUM [Concomitant]
     Active Substance: ESOMEPRAZOLE\ESOMEPRAZOLE MAGNESIUM\ESOMEPRAZOLE MAGNESIUM DIHYDRATE
  11. VALTREX [Concomitant]
     Active Substance: VALACYCLOVIR HYDROCHLORIDE
  12. LIVTENCITY [Concomitant]
     Active Substance: MARIBAVIR
  13. OSPEN [PHENOXYMETHYLPENICILLIN] [Concomitant]
  14. SODIUM BICARBONATE [Concomitant]
     Active Substance: SODIUM BICARBONATE
  15. URSODIOL [Concomitant]
     Active Substance: URSODIOL
  16. FENTANYL [Concomitant]
     Active Substance: FENTANYL\FENTANYL CITRATE
  17. PROPOFOL [Concomitant]
     Active Substance: PROPOFOL
  18. PERFALGAN [Concomitant]
     Active Substance: ACETAMINOPHEN

REACTIONS (1)
  - Hepatocellular injury [Not Recovered/Not Resolved]

NARRATIVE: CASE EVENT DATE: 20240214
